FAERS Safety Report 23177656 (Version 1)
Quarter: 2023Q4

REPORT INFORMATION
  Report Type: Spontaneous
  Country: US (occurrence: US)
  Receive Date: 20231113
  Receipt Date: 20231113
  Transmission Date: 20240110
  Serious: No
  Sender: FDA-Public Use
  Company Number: US-PERRIGO-23US006978

PATIENT
  Age: 83 Year
  Sex: Male
  Weight: 90.703 kg

DRUGS (10)
  1. POLYETHYLENE GLYCOL 3350 [Suspect]
     Active Substance: POLYETHYLENE GLYCOL 3350
     Indication: Constipation
     Dosage: 17 G, BID
     Route: 048
     Dates: start: 20230611
  2. POLYETHYLENE GLYCOL 3350 [Suspect]
     Active Substance: POLYETHYLENE GLYCOL 3350
     Dosage: 17 G, QD
     Route: 048
     Dates: start: 202305, end: 20230610
  3. POLYETHYLENE GLYCOL 3350 [Suspect]
     Active Substance: POLYETHYLENE GLYCOL 3350
     Dosage: 17 G, QD PRN
     Route: 048
     Dates: start: 2021, end: 202305
  4. DILTIAZEM [Concomitant]
     Active Substance: DILTIAZEM
     Indication: Hypertension
     Dosage: 120 MG, UNKNOWN
     Route: 065
     Dates: start: 2021
  5. LOSARTAN [Concomitant]
     Active Substance: LOSARTAN
     Indication: Hypertension
     Dosage: 50 MG, UNKNOWN
     Route: 065
     Dates: start: 2021
  6. TAMSULOSIN [Concomitant]
     Active Substance: TAMSULOSIN
     Indication: Hypertonic bladder
     Dosage: .4 MG, UNKNOWN
     Route: 065
     Dates: start: 2021
  7. TROSPIUM [Concomitant]
     Active Substance: TROSPIUM
     Indication: Hypertonic bladder
     Dosage: 20 MG, UNKNOWN
     Route: 065
     Dates: start: 2021
  8. HERBALS\SAW PALMETTO [Concomitant]
     Active Substance: HERBALS\SAW PALMETTO
     Indication: Hypertonic bladder
     Dosage: UNK
     Route: 065
     Dates: start: 2021
  9. DULCOLAX (BISACODYL) [Concomitant]
     Active Substance: BISACODYL
     Indication: Constipation
     Dosage: UNKNOWN, ONCE A WEEK PRN
     Route: 054
     Dates: start: 2022
  10. DOCUSATE SODIUM [Concomitant]
     Active Substance: DOCUSATE SODIUM
     Indication: Faeces hard
     Dosage: 250 MG, UNKNOWN
     Route: 065

REACTIONS (4)
  - Therapeutic product effect decreased [Unknown]
  - Incorrect product administration duration [Unknown]
  - Inappropriate schedule of product administration [Unknown]
  - Incorrect dose administered [Unknown]

NARRATIVE: CASE EVENT DATE: 20230501
